FAERS Safety Report 8189302-3 (Version None)
Quarter: 2012Q1

REPORT INFORMATION
  Report Type: 
  Country: None (occurrence: None)
  Receive Date: 20120307
  Receipt Date: 20120228
  Transmission Date: 20120608
  Serious: Yes (Hospitalization)
  Sender: FDA-Public Use
  Company Number: US-BAYER-2011-084957

PATIENT
  Age: 31 Year
  Sex: Female
  Weight: 96.599 kg

DRUGS (5)
  1. YASMIN [Suspect]
     Indication: CONTRACEPTION
     Dosage: UNK
     Route: 048
     Dates: start: 20020101, end: 20070101
  2. SYNTHROID [Concomitant]
     Dosage: UNK
     Dates: start: 20070320
  3. ALBUTEROL [Concomitant]
     Dosage: UNK UNK, PRN
  4. SINGULAIR [Concomitant]
     Dosage: UNK UNK, QD
  5. METFORMIN HCL [Concomitant]
     Dosage: UNK
     Dates: start: 20070320

REACTIONS (4)
  - CHOLECYSTITIS CHRONIC [None]
  - ABDOMINAL PAIN UPPER [None]
  - PAIN [None]
  - GALLBLADDER INJURY [None]
